FAERS Safety Report 8233581-0 (Version None)
Quarter: 2012Q1

REPORT INFORMATION
  Report Type: 
  Country: None (occurrence: None)
  Receive Date: 20120326
  Receipt Date: 20120316
  Transmission Date: 20120608
  Serious: Yes (Other)
  Sender: FDA-Public Use
  Company Number: PHHY2012FR024185

PATIENT
  Age: 45 Year
  Sex: Male

DRUGS (4)
  1. LOVENOX [Concomitant]
  2. EXJADE [Suspect]
     Indication: SERUM FERRITIN INCREASED
  3. PREVISCAN [Concomitant]
  4. EXJADE [Suspect]
     Indication: SICKLE CELL ANAEMIA

REACTIONS (1)
  - INJECTION SITE HAEMORRHAGE [None]
